FAERS Safety Report 9825450 (Version 4)
Quarter: 2014Q1

REPORT INFORMATION
  Report Type: Spontaneous
  Country: US (occurrence: US)
  Receive Date: 20140117
  Receipt Date: 20140310
  Transmission Date: 20141002
  Serious: No
  Sender: FDA-Public Use
  Company Number: US-PFIZER INC-2014013106

PATIENT
  Age: 44 Year
  Sex: Female
  Weight: 88.44 kg

DRUGS (4)
  1. LYRICA [Suspect]
     Indication: AUTOIMMUNE DISORDER
     Dosage: 150 MG, 3X/DAY
     Dates: start: 201208
  2. LYRICA [Suspect]
     Indication: FIBROMYALGIA
  3. LYRICA [Suspect]
     Indication: BEHCET^S SYNDROME
  4. TRAMADOL [Concomitant]
     Dosage: 100 MG, 3X/DAY

REACTIONS (5)
  - Malaise [Unknown]
  - Pain [Not Recovered/Not Resolved]
  - Chills [Unknown]
  - Influenza like illness [Not Recovered/Not Resolved]
  - Pyrexia [Not Recovered/Not Resolved]
